FAERS Safety Report 20474143 (Version 1)
Quarter: 2022Q1

REPORT INFORMATION
  Report Type: Spontaneous
  Country: BE (occurrence: BE)
  Receive Date: 20220215
  Receipt Date: 20220215
  Transmission Date: 20220423
  Serious: Yes (Other)
  Sender: FDA-Public Use
  Company Number: BE-NOVARTISPH-NVSC2022BE030745

PATIENT
  Age: 80 Year
  Sex: Female

DRUGS (10)
  1. ACYCLOVIR [Suspect]
     Active Substance: ACYCLOVIR
     Indication: Antiviral prophylaxis
     Dosage: 800 MG, BID
     Route: 065
  2. ACYCLOVIR [Suspect]
     Active Substance: ACYCLOVIR
     Indication: Herpes ophthalmic
     Dosage: 800 MG, TID
     Route: 065
  3. PREDNISOLONE ACETATE [Concomitant]
     Active Substance: PREDNISOLONE ACETATE
     Indication: Herpes ophthalmic
     Dosage: 10 MG/ML DROPS 5 TIMES A DAY
     Route: 047
  4. MOXIFLOXACIN [Concomitant]
     Active Substance: MOXIFLOXACIN
     Indication: Hypopyon
     Dosage: 5MG/ML, Q2H
     Route: 061
  5. CHLORAMPHENICOL [Concomitant]
     Active Substance: CHLORAMPHENICOL
     Indication: Hypopyon
     Dosage: 0.5 %, QH
     Route: 065
  6. VANCOMYCIN [Concomitant]
     Active Substance: VANCOMYCIN
     Indication: Hypopyon
     Dosage: UNK
     Route: 065
  7. AMIKACIN [Concomitant]
     Active Substance: AMIKACIN
     Indication: Hypopyon
     Dosage: UNK
     Route: 065
  8. TOBRAMYCIN AND DEXAMETHASONE [Concomitant]
     Active Substance: DEXAMETHASONE\TOBRAMYCIN
     Indication: Hypopyon
     Dosage: UNK (ANTE NOCTE)
     Route: 047
  9. DEXAMETHASONE [Concomitant]
     Active Substance: DEXAMETHASONE
     Indication: Hypopyon
     Dosage: UNK, QD (ANTE NOCTE)
     Route: 061
  10. VORICONAZOLE [Concomitant]
     Active Substance: VORICONAZOLE
     Indication: Hypopyon
     Dosage: UNK, QID
     Route: 061

REACTIONS (1)
  - Drug resistance [Unknown]
